FAERS Safety Report 24364155 (Version 1)
Quarter: 2024Q3

REPORT INFORMATION
  Report Type: Spontaneous
  Country: US (occurrence: US)
  Receive Date: 20240925
  Receipt Date: 20240925
  Transmission Date: 20241017
  Serious: No
  Sender: BAUSCH AND LOMB
  Company Number: US-BAUSCHBL-2024BNL033545

PATIENT
  Age: 80 Year
  Sex: Male

DRUGS (1)
  1. XIIDRA [Suspect]
     Active Substance: LIFITEGRAST
     Indication: Dry eye
     Route: 047
     Dates: start: 20240915

REACTIONS (4)
  - Burning sensation [Unknown]
  - Pain [Unknown]
  - Vision blurred [Unknown]
  - Eye discharge [Unknown]

NARRATIVE: CASE EVENT DATE: 20240901
